FAERS Safety Report 8505882-X (Version None)
Quarter: 2012Q3

REPORT INFORMATION
  Report Type: 
  Country: None (occurrence: None)
  Receive Date: 20120712
  Receipt Date: 20120705
  Transmission Date: 20120928
  Serious: Yes (Hospitalization)
  Sender: FDA-Public Use
  Company Number: DE-ACTELION-A-US2012-68416

PATIENT

DRUGS (1)
  1. VENTAVIS [Suspect]
     Indication: MULTIPLE SCLEROSIS
     Dosage: 1 ML, QOD
     Route: 055
     Dates: start: 20120606

REACTIONS (5)
  - DYSPNOEA [None]
  - CHEST PAIN [None]
  - PALPITATIONS [None]
  - ABDOMINAL PAIN [None]
  - HYPERHIDROSIS [None]
